FAERS Safety Report 6196519-6 (Version None)
Quarter: 2009Q2

REPORT INFORMATION
  Report Type: 
  Country: None (occurrence: None)
  Receive Date: 20090518
  Receipt Date: 20090518
  Transmission Date: 20091009
  Serious: Yes (Other)
  Sender: FDA-Public Use
  Company Number: None

PATIENT
  Age: 51 Year
  Sex: Male
  Weight: 113.3993 kg

DRUGS (1)
  1. ELMIRON [Suspect]
     Indication: BLADDER PAIN
     Dosage: 100MG 3 TIMES A DAY PO
     Route: 048
     Dates: start: 20081220, end: 20090515

REACTIONS (2)
  - ANGER [None]
  - HOSTILITY [None]
